FAERS Safety Report 9909940 (Version 1)
Quarter: 2014Q1

REPORT INFORMATION
  Report Type: Spontaneous
  Country: US (occurrence: US)
  Receive Date: 20140219
  Receipt Date: 20140219
  Transmission Date: 20141002
  Serious: No
  Sender: FDA-Public Use
  Company Number: US-GILEAD-2012-0054740

PATIENT
  Age: 64 Year
  Sex: Female

DRUGS (2)
  1. LETAIRIS [Suspect]
     Indication: PRODUCT USED FOR UNKNOWN INDICATION
     Dosage: 10 MG, UNK
     Route: 048
     Dates: start: 20120502
  2. ADCIRCA [Suspect]

REACTIONS (5)
  - Dizziness [Not Recovered/Not Resolved]
  - Ear congestion [Unknown]
  - Migraine with aura [Not Recovered/Not Resolved]
  - Nasal congestion [Unknown]
  - Headache [Unknown]
